FAERS Safety Report 19276912 (Version 2)
Quarter: 2021Q2

REPORT INFORMATION
  Report Type: Report from Study
  Country: IT (occurrence: IT)
  Receive Date: 20210519
  Receipt Date: 20210611
  Transmission Date: 20210717
  Serious: Yes (Hospitalization)
  Sender: FDA-Public Use
  Company Number: IT-EXELIXIS-XL18421040486

PATIENT
  Age: 67 Year
  Sex: Male
  Weight: 70 kg

DRUGS (11)
  1. DUROGESIC [Concomitant]
     Active Substance: FENTANYL
  2. LYRICA [Concomitant]
     Active Substance: PREGABALIN
  3. LOSAZID [Concomitant]
     Active Substance: HYDROCHLOROTHIAZIDE\LOSARTAN POTASSIUM
  4. ENTACT [Concomitant]
     Active Substance: ESCITALOPRAM OXALATE
  5. DEXAMETHASONE. [Concomitant]
     Active Substance: DEXAMETHASONE
  6. LANSOPRAZOLE. [Concomitant]
     Active Substance: LANSOPRAZOLE
  7. EUTIROX [Concomitant]
     Active Substance: LEVOTHYROXINE SODIUM
  8. EFFENTORA [Concomitant]
     Active Substance: FENTANYL CITRATE
  9. XL184 [Suspect]
     Active Substance: CABOZANTINIB
     Indication: THYROID CANCER
     Dosage: 60 MG, QD
     Route: 048
     Dates: start: 20200827
  10. DIBASE [Concomitant]
     Active Substance: CHOLECALCIFEROL
  11. ENOXAPARINA [Concomitant]
     Active Substance: ENOXAPARIN

REACTIONS (2)
  - Colitis [Recovered/Resolved]
  - Anal abscess [Recovered/Resolved]

NARRATIVE: CASE EVENT DATE: 20210504
